FAERS Safety Report 15642811 (Version 1)
Quarter: 2018Q4

REPORT INFORMATION
  Report Type: Report from Study
  Country: ES (occurrence: ES)
  Receive Date: 20181121
  Receipt Date: 20181121
  Transmission Date: 20190205
  Serious: Yes (Hospitalization, Other)
  Sender: FDA-Public Use
  Company Number: ES-IPSEN BIOPHARMACEUTICALS, INC.-2018-16021

PATIENT
  Age: 62 Year
  Sex: Male
  Weight: 81 kg

DRUGS (2)
  1. CABOMETYX [Suspect]
     Active Substance: CABOZANTINIB S-MALATE
     Indication: RENAL CANCER
     Route: 048
     Dates: start: 20180921, end: 20181021
  2. CABOMETYX [Suspect]
     Active Substance: CABOZANTINIB S-MALATE
     Route: 048
     Dates: start: 20181026

REACTIONS (5)
  - Neutropenia [Unknown]
  - Pyrexia [Recovered/Resolved]
  - Aphthous ulcer [Unknown]
  - Asthenia [Unknown]
  - Dysphonia [Unknown]

NARRATIVE: CASE EVENT DATE: 20180921
